FAERS Safety Report 9903337 (Version 1)
Quarter: 2014Q1

REPORT INFORMATION
  Report Type: Spontaneous
  Country: US (occurrence: US)
  Receive Date: 20140217
  Receipt Date: 20140217
  Transmission Date: 20141002
  Serious: No
  Sender: FDA-Public Use
  Company Number: US-GILEAD-2011-0045482

PATIENT
  Age: 69 Year
  Sex: Female

DRUGS (11)
  1. LETAIRIS [Suspect]
     Indication: PULMONARY HYPERTENSION
     Dosage: 5 MG, UNK
     Route: 048
     Dates: start: 201007
  2. REVATIO [Concomitant]
  3. COUMADIN                           /00014802/ [Concomitant]
  4. QVAR [Concomitant]
  5. PROAIR HFA [Concomitant]
  6. AMLODIPINE [Concomitant]
  7. PREVACOR [Concomitant]
  8. PANTOPRAZOLE [Concomitant]
  9. SPIRONOLACTONE [Concomitant]
  10. LEVOTHROID [Concomitant]
  11. LASIX                              /00032601/ [Concomitant]

REACTIONS (2)
  - Nervousness [Unknown]
  - Fatigue [Unknown]
